FAERS Safety Report 19978567 (Version 1)
Quarter: 2021Q4

REPORT INFORMATION
  Report Type: Spontaneous
  Country: US (occurrence: US)
  Receive Date: 20211020
  Receipt Date: 20211020
  Transmission Date: 20220303
  Serious: Yes (Hospitalization)
  Sender: FDA-Public Use
  Company Number: None

PATIENT
  Sex: Male

DRUGS (1)
  1. REBIF REBIDOSE [Suspect]
     Active Substance: INTERFERON BETA-1A
     Indication: Multiple sclerosis
     Dosage: ?          OTHER DOSE:44MCG/0.5ML ;
     Route: 058

REACTIONS (3)
  - Urinary tract infection [None]
  - Cystitis [None]
  - Sepsis [None]
